FAERS Safety Report 5747611-9 (Version None)
Quarter: 2008Q2

REPORT INFORMATION
  Report Type: 
  Country: None (occurrence: None)
  Receive Date: 20080523
  Receipt Date: 20080519
  Transmission Date: 20081010
  Serious: Yes (Hospitalization)
  Sender: FDA-Public Use
  Company Number: US-ASTRAZENECA-2006UW21110

PATIENT
  Age: 43 Year
  Sex: Female
  Weight: 56.8 kg

DRUGS (5)
  1. SEROQUEL [Suspect]
     Indication: DEPRESSION
     Route: 048
     Dates: start: 20020531, end: 20060101
  2. SEROQUEL [Suspect]
     Indication: SCHIZOPHRENIA
     Route: 048
     Dates: start: 20020531, end: 20060101
  3. RISPERIDONE [Concomitant]
  4. OLANZAPINE [Concomitant]
  5. EFFEXOR [Concomitant]
     Dates: start: 20000301

REACTIONS (2)
  - DIABETES MELLITUS [None]
  - HYSTERECTOMY [None]
